FAERS Safety Report 13039388 (Version 1)
Quarter: 2016Q4

REPORT INFORMATION
  Report Type: Spontaneous
  Country: US (occurrence: US)
  Receive Date: 20161219
  Receipt Date: 20161219
  Transmission Date: 20170207
  Serious: No
  Sender: FDA-Public Use
  Company Number: US-BAYER-2016-236856

PATIENT
  Age: 64 Year
  Sex: Female
  Weight: 70.3 kg

DRUGS (4)
  1. ALEVE PM [Suspect]
     Active Substance: DIPHENHYDRAMINE HYDROCHLORIDE\NAPROXEN SODIUM
     Dosage: 2 ONE TIME
     Route: 048
     Dates: start: 20161205, end: 20161205
  2. LIPITOR [Concomitant]
     Active Substance: ATORVASTATIN CALCIUM
  3. ALEVE PM [Suspect]
     Active Substance: DIPHENHYDRAMINE HYDROCHLORIDE\NAPROXEN SODIUM
     Dosage: 2 EVERY 8-12 HOURS
     Route: 048
     Dates: start: 201606
  4. ACIDEX [CALCIUM CARBONATE,SODIUM ALGINATE,SODIUM BICARBONATE] [Concomitant]

REACTIONS (5)
  - Adverse drug reaction [Recovered/Resolved]
  - Product use issue [Unknown]
  - Tremor [Recovered/Resolved]
  - Muscle spasms [Recovered/Resolved]
  - Product use issue [Unknown]

NARRATIVE: CASE EVENT DATE: 201606
